FAERS Safety Report 21330685 (Version 1)
Quarter: 2022Q3

REPORT INFORMATION
  Report Type: Spontaneous
  Country: CA (occurrence: CA)
  Receive Date: 20220913
  Receipt Date: 20220913
  Transmission Date: 20221027
  Serious: Yes (Other)
  Sender: FDA-Public Use
  Company Number: CA-PFIZER INC-202201159811

PATIENT
  Age: 70 Year
  Sex: Male

DRUGS (2)
  1. CRIZOTINIB [Suspect]
     Active Substance: CRIZOTINIB
     Dosage: UNK
  2. ENTRECTINIB [Suspect]
     Active Substance: ENTRECTINIB
     Dosage: UNK
     Dates: start: 202204

REACTIONS (4)
  - Right ventricular dysfunction [Unknown]
  - Pulmonary hypertension [Unknown]
  - Tricuspid valve incompetence [Unknown]
  - Pleural effusion [Unknown]
